FAERS Safety Report 18742574 (Version 1)
Quarter: 2021Q1

REPORT INFORMATION
  Report Type: Spontaneous
  Country: US (occurrence: US)
  Receive Date: 20210114
  Receipt Date: 20210114
  Transmission Date: 20210419
  Serious: No
  Sender: FDA-Public Use
  Company Number: US-ALKERMES INC.-ALK-2021-000089

PATIENT
  Sex: Male

DRUGS (1)
  1. ARISTADA [Suspect]
     Active Substance: ARIPIPRAZOLE LAUROXIL
     Indication: ANGER
     Dosage: 882 MILLIGRAM, Q4WK
     Route: 030

REACTIONS (2)
  - Off label use [Not Recovered/Not Resolved]
  - Amnesia [Not Recovered/Not Resolved]
